FAERS Safety Report 5824458-6 (Version None)
Quarter: 2008Q3

REPORT INFORMATION
  Report Type: 
  Country: None (occurrence: None)
  Receive Date: 20080728
  Receipt Date: 20080724
  Transmission Date: 20090109
  Serious: Yes (Death, Hospitalization)
  Sender: FDA-Public Use
  Company Number: B0529732A

PATIENT
  Age: 53 Year
  Sex: Male

DRUGS (1)
  1. AUGMENTIN '125' [Suspect]
     Indication: PHARYNGITIS
     Dosage: 1TAB SIX TIMES PER DAY
     Route: 065
     Dates: start: 20080623, end: 20080623

REACTIONS (1)
  - STEVENS-JOHNSON SYNDROME [None]
